FAERS Safety Report 8590543-1 (Version None)
Quarter: 2012Q3

REPORT INFORMATION
  Report Type: 
  Country: None (occurrence: None)
  Receive Date: 20120813
  Receipt Date: 20120806
  Transmission Date: 20120928
  Serious: Yes (Hospitalization)
  Sender: FDA-Public Use
  Company Number: US-ABBOTT-12P-163-0965442-00

PATIENT
  Age: 37 Year
  Sex: Female

DRUGS (14)
  1. INDERAL ER [Concomitant]
     Indication: MIGRAINE
  2. OXYCONTIN [Concomitant]
     Indication: PRODUCT USED FOR UNKNOWN INDICATION
  3. SEROQUEL LA [Concomitant]
     Indication: PRODUCT USED FOR UNKNOWN INDICATION
  4. MAXZIDE [Concomitant]
     Indication: ABDOMINAL DISTENSION
  5. HUMIRA [Suspect]
     Route: 058
     Dates: start: 20120720, end: 20120720
  6. HUMIRA [Suspect]
     Indication: CROHN'S DISEASE
     Route: 058
     Dates: start: 20120706, end: 20120706
  7. PRISTIQ [Concomitant]
     Indication: PRODUCT USED FOR UNKNOWN INDICATION
  8. PRAVASTATIN [Concomitant]
     Indication: PRODUCT USED FOR UNKNOWN INDICATION
  9. PRIMIDONE [Concomitant]
     Indication: INSOMNIA
     Dosage: AT BEDTIME
  10. XANAX [Concomitant]
     Indication: ABDOMINAL DISCOMFORT
  11. DDAVP [Concomitant]
     Indication: VON WILLEBRAND'S DISEASE
     Dosage: NASAL SPRAY
  12. SPIRIVA [Concomitant]
     Indication: PRODUCT USED FOR UNKNOWN INDICATION
  13. ALBUTEROL [Concomitant]
     Indication: PRODUCT USED FOR UNKNOWN INDICATION
  14. HUMIRA [Suspect]
     Route: 058
     Dates: start: 20120803

REACTIONS (3)
  - POST-TRAUMATIC STRESS DISORDER [None]
  - DEPRESSION [None]
  - DIARRHOEA [None]
